FAERS Safety Report 21636832 (Version 1)
Quarter: 2022Q4

REPORT INFORMATION
  Report Type: Spontaneous
  Country: PT (occurrence: PT)
  Receive Date: 20221124
  Receipt Date: 20221124
  Transmission Date: 20230112
  Serious: Yes (Hospitalization, Other)
  Sender: FDA-Public Use
  Company Number: PT-AMGEN-PRTSP2022198045

PATIENT

DRUGS (3)
  1. ADALIMUMAB [Suspect]
     Active Substance: ADALIMUMAB
     Indication: Rheumatoid arthritis
     Dosage: UNK
     Route: 065
  2. ADALIMUMAB [Suspect]
     Active Substance: ADALIMUMAB
     Indication: Axial spondyloarthritis
  3. ADALIMUMAB [Suspect]
     Active Substance: ADALIMUMAB
     Indication: Psoriatic arthropathy

REACTIONS (16)
  - Unevaluable event [Unknown]
  - Subacute cutaneous lupus erythematosus [Unknown]
  - Chronic cutaneous lupus erythematosus [Unknown]
  - Lupus-like syndrome [Unknown]
  - Cutaneous vasculitis [Unknown]
  - Rosacea [Unknown]
  - Chillblains [Unknown]
  - Erythema nodosum [Unknown]
  - Butterfly rash [Unknown]
  - Skin lesion [Unknown]
  - Alopecia areata [Unknown]
  - Palmoplantar pustulosis [Unknown]
  - Guttate psoriasis [Unknown]
  - Psoriasis [Unknown]
  - Alopecia [Unknown]
  - Urticaria [Unknown]
